FAERS Safety Report 6609406-3 (Version None)
Quarter: 2010Q1

REPORT INFORMATION
  Report Type: 
  Country: None (occurrence: None)
  Receive Date: 20100224
  Receipt Date: 20100219
  Transmission Date: 20100710
  Serious: Yes (Hospitalization)
  Sender: FDA-Public Use
  Company Number: 2009SP043695

PATIENT
  Age: 40 Year
  Sex: Male
  Weight: 72 kg

DRUGS (4)
  1. PEG-INTRON [Suspect]
     Indication: HEPATITIS C
     Dosage: 1.5 MCG/KG; QW;
     Dates: start: 20091023, end: 20091120
  2. PEG-INTRON [Suspect]
     Indication: HEPATITIS C
     Dosage: 1.5 MCG/KG; QW;
     Dates: start: 20091201, end: 20091227
  3. RIBAVIRIN [Suspect]
     Indication: HEPATITIS C
     Dosage: 200 MG;
     Dates: start: 20091023, end: 20091120
  4. RIBAVIRIN [Suspect]
     Indication: HEPATITIS C
     Dosage: 200 MG;
     Dates: start: 20091201, end: 20091227

REACTIONS (6)
  - ABDOMINAL PAIN [None]
  - ASTHENIA [None]
  - BLOOD AMYLASE INCREASED [None]
  - PANCREATIC DISORDER [None]
  - UNEVALUABLE EVENT [None]
  - VOMITING [None]
